FAERS Safety Report 10529788 (Version 1)
Quarter: 2014Q4

REPORT INFORMATION
  Report Type: Spontaneous
  Country: US (occurrence: None)
  Receive Date: 20141020
  Receipt Date: 20141020
  Transmission Date: 20150528
  Serious: No
  Sender: FDA-Public Use
  Company Number: None

PATIENT
  Age: 74 Year
  Sex: Female
  Weight: 74.84 kg

DRUGS (12)
  1. ALBUTEROL. [Concomitant]
     Active Substance: ALBUTEROL
  2. ATORVASTATIN [Concomitant]
     Active Substance: ATORVASTATIN
  3. RANITIDINE [Concomitant]
     Active Substance: RANITIDINE\RANITIDINE HYDROCHLORIDE
  4. PANTOPRAZOLE [Concomitant]
     Active Substance: PANTOPRAZOLE SODIUM
  5. MACRODANTIN [Concomitant]
     Active Substance: NITROFURANTOIN
  6. VITAMIN E [Concomitant]
     Active Substance: .ALPHA.-TOCOPHEROL
  7. CARVEDILOL. [Concomitant]
     Active Substance: CARVEDILOL
  8. LOSARTAN [Concomitant]
     Active Substance: LOSARTAN
  9. SPIRIVA [Suspect]
     Active Substance: TIOTROPIUM BROMIDE MONOHYDRATE
     Indication: CHRONIC OBSTRUCTIVE PULMONARY DISEASE
     Dosage: 30 CAPSULES 1 EACH MORNING  CAPSULE TO BE PIERCED THEN INHALED
     Dates: start: 20140824, end: 20141006
  10. HYDRAZALINE [Concomitant]
  11. PRASUGREL [Concomitant]
     Active Substance: PRASUGREL
  12. ADVAIR HFA [Concomitant]
     Active Substance: FLUTICASONE PROPIONATE\SALMETEROL XINAFOATE

REACTIONS (12)
  - Swollen tongue [None]
  - Dry mouth [None]
  - Local swelling [None]
  - Dyspepsia [None]
  - Constipation [None]
  - Rash [None]
  - Pain [None]
  - Device failure [None]
  - Urticaria [None]
  - Urinary retention [None]
  - Pruritus [None]
  - Dysphagia [None]
